FAERS Safety Report 14270676 (Version 1)
Quarter: 2017Q4

REPORT INFORMATION
  Report Type: Spontaneous
  Country: JP (occurrence: JP)
  Receive Date: 20171211
  Receipt Date: 20171211
  Transmission Date: 20180321
  Serious: Yes (Life-Threatening, Other)
  Sender: FDA-Public Use
  Company Number: JP-OTSUKA-JP-2014-19313

PATIENT

DRUGS (32)
  1. BENZALIN [Concomitant]
     Active Substance: NITRAZEPAM
     Indication: PRODUCT USED FOR UNKNOWN INDICATION
     Dosage: 2 MG/DAY
     Route: 048
     Dates: start: 20050414, end: 20141009
  2. ABILIFY [Suspect]
     Active Substance: ARIPIPRAZOLE
     Indication: SCHIZOPHRENIA
     Dosage: 30 MG/DAY
     Route: 048
     Dates: start: 20100327, end: 20110223
  3. ABILIFY [Suspect]
     Active Substance: ARIPIPRAZOLE
     Dosage: 24 MG/DAY
     Route: 048
     Dates: start: 20140920, end: 20140926
  4. RABEPRAZOLE SODIUM. [Suspect]
     Active Substance: RABEPRAZOLE SODIUM
     Indication: GASTROOESOPHAGEAL REFLUX DISEASE
     Dosage: 10 MG/DAY
     Route: 048
     Dates: start: 20120112, end: 20141009
  5. URSO S [Concomitant]
     Dosage: 300 MG/DAY
     Route: 048
     Dates: start: 20140920
  6. NATILDINE [Concomitant]
     Indication: PRODUCT USED FOR UNKNOWN INDICATION
     Dosage: 4-6 MG/DAY
     Route: 048
     Dates: start: 20110701
  7. ABILIFY [Suspect]
     Active Substance: ARIPIPRAZOLE
     Dosage: 30 MG/DAY
     Route: 048
     Dates: start: 20120319, end: 20121003
  8. ABILIFY [Suspect]
     Active Substance: ARIPIPRAZOLE
     Dosage: 30 MG/ DAY
     Route: 048
     Dates: start: 20130110, end: 20140919
  9. ZYPREXA [Suspect]
     Active Substance: OLANZAPINE
     Dosage: 10 MG/DAY
     Route: 048
     Dates: start: 20141009, end: 20141028
  10. ABILIFY [Suspect]
     Active Substance: ARIPIPRAZOLE
     Dosage: 18 MG/DAY
     Route: 048
     Dates: start: 20140927, end: 20141003
  11. ABILIFY [Suspect]
     Active Substance: ARIPIPRAZOLE
     Dosage: 12 MG/DAY
     Route: 048
     Dates: start: 20141004, end: 20141009
  12. LICKLE [Concomitant]
     Active Substance: ISOLEUCINE\LEUCINE\VALINE
     Indication: PRODUCT USED FOR UNKNOWN INDICATION
     Dosage: 14.22 G/DAY
     Route: 048
     Dates: start: 20140619
  13. BENZALIN [Concomitant]
     Active Substance: NITRAZEPAM
     Dosage: 5 MG/DAY
     Route: 048
     Dates: start: 20141010
  14. ABILIFY [Suspect]
     Active Substance: ARIPIPRAZOLE
     Indication: SCHIZOPHRENIA
     Dosage: 12 MG/DAY
     Route: 048
     Dates: start: 20090825, end: 20090828
  15. ABILIFY [Suspect]
     Active Substance: ARIPIPRAZOLE
     Dosage: 18 MG/DAY
     Route: 048
     Dates: start: 20110310, end: 20110314
  16. ABILIFY [Suspect]
     Active Substance: ARIPIPRAZOLE
     Dosage: 6 MG/DAY
     Route: 048
     Dates: start: 20141010, end: 20141017
  17. DAIKENTYUTO [Concomitant]
     Active Substance: HERBALS
     Indication: PRODUCT USED FOR UNKNOWN INDICATION
     Dosage: 7.5 G/DAY
     Route: 048
     Dates: start: 20110627, end: 20141209
  18. ABILIFY [Suspect]
     Active Substance: ARIPIPRAZOLE
     Dosage: 18 MG/DAY
     Route: 048
     Dates: start: 20090829, end: 20090919
  19. ABILIFY [Suspect]
     Active Substance: ARIPIPRAZOLE
     Dosage: 30 MG/DAY
     Route: 048
     Dates: start: 20100227, end: 20100326
  20. ABILIFY [Suspect]
     Active Substance: ARIPIPRAZOLE
     Dosage: 24 MG/DAY
     Route: 048
     Dates: start: 20110315, end: 20120318
  21. ZYPREXA [Suspect]
     Active Substance: OLANZAPINE
     Indication: SCHIZOPHRENIA
     Dosage: 20 MG/DAY
     Route: 048
     Dates: start: 20110822, end: 20140910
  22. ZYPREXA [Suspect]
     Active Substance: OLANZAPINE
     Dosage: 7.5 MG/DAY
     Route: 048
     Dates: start: 20141029
  23. OLANZAPINE. [Suspect]
     Active Substance: OLANZAPINE
     Dosage: 7.5 MG, QD
     Route: 048
     Dates: start: 20141029
  24. URSO S [Concomitant]
     Indication: PRODUCT USED FOR UNKNOWN INDICATION
     Dosage: 300-600 MG/DAY
     Route: 048
     Dates: start: 20070314
  25. ABILIFY [Suspect]
     Active Substance: ARIPIPRAZOLE
     Dosage: 24 MG/DAY
     Route: 048
     Dates: start: 20090920, end: 20100226
  26. ZYPREXA [Suspect]
     Active Substance: OLANZAPINE
     Dosage: 15 MG/DAY
     Route: 048
     Dates: start: 20140911, end: 20141008
  27. OLANZAPINE. [Suspect]
     Active Substance: OLANZAPINE
     Dosage: 15 MG, QD
     Route: 048
     Dates: start: 20140911, end: 20141008
  28. OLANZAPINE. [Suspect]
     Active Substance: OLANZAPINE
     Dosage: 10 MG, QD
     Route: 048
     Dates: start: 20141009, end: 20141028
  29. THYRADIN S [Concomitant]
     Active Substance: LEVOTHYROXINE SODIUM
     Indication: PRODUCT USED FOR UNKNOWN INDICATION
     Dosage: 50-100 ?G/DAY
     Route: 048
     Dates: start: 20081016
  30. OLANZAPINE. [Suspect]
     Active Substance: OLANZAPINE
     Indication: SCHIZOPHRENIA
     Dosage: 20 MG, QD
     Route: 048
     Dates: start: 20110822, end: 20140910
  31. ABILIFY [Suspect]
     Active Substance: ARIPIPRAZOLE
     Dosage: 24 MG/DAY
     Route: 048
     Dates: start: 20110224, end: 20110309
  32. ABILIFY [Suspect]
     Active Substance: ARIPIPRAZOLE
     Dosage: 24 MG/DAY
     Route: 048
     Dates: start: 20121004, end: 20130109

REACTIONS (1)
  - Neutropenia [Recovered/Resolved]

NARRATIVE: CASE EVENT DATE: 20140929
